FAERS Safety Report 7833835-3 (Version None)
Quarter: 2011Q4

REPORT INFORMATION
  Report Type: 
  Country: None (occurrence: None)
  Receive Date: 20111024
  Receipt Date: 20111020
  Transmission Date: 20120403
  Serious: Yes (Death)
  Sender: FDA-Public Use
  Company Number: CA-GLAXOSMITHKLINE-A0949923A

PATIENT
  Sex: Female

DRUGS (3)
  1. TYKERB [Suspect]
     Indication: BREAST CANCER
     Dosage: 1250MG PER DAY
     Route: 048
     Dates: start: 20110722
  2. DECADRON [Concomitant]
  3. XELODA [Concomitant]

REACTIONS (1)
  - DEATH [None]
